FAERS Safety Report 5972576-4 (Version None)
Quarter: 2008Q4

REPORT INFORMATION
  Report Type: 
  Country: None (occurrence: None)
  Receive Date: 20081125
  Receipt Date: 20081119
  Transmission Date: 20090506
  Serious: Yes (Other)
  Sender: FDA-Public Use
  Company Number: SP02130

PATIENT
  Age: 70 Year
  Sex: Female

DRUGS (1)
  1. MOVIPREP [Suspect]
     Indication: COLONOSCOPY
     Dosage: (5 LIT), ORAL
     Route: 048

REACTIONS (2)
  - METABOLIC ACIDOSIS [None]
  - TACHYPNOEA [None]
